FAERS Safety Report 6298991-X (Version None)
Quarter: 2009Q3

REPORT INFORMATION
  Report Type: 
  Country: None (occurrence: None)
  Receive Date: 20090803
  Receipt Date: 20090727
  Transmission Date: 20100115
  Serious: Yes (Other)
  Sender: FDA-Public Use
  Company Number: 1-19325369

PATIENT
  Age: 43 Year
  Sex: Female

DRUGS (1)
  1. QUALAQUIN [Suspect]
     Indication: MUSCLE SPASMS
     Dosage: ORAL
     Route: 048

REACTIONS (5)
  - DIALYSIS [None]
  - HAEMOLYTIC URAEMIC SYNDROME [None]
  - INTERNATIONAL NORMALISED RATIO DECREASED [None]
  - RENAL FAILURE [None]
  - THROMBOTIC THROMBOCYTOPENIC PURPURA [None]
